FAERS Safety Report 20059089 (Version 1)
Quarter: 2021Q4

REPORT INFORMATION
  Report Type: Spontaneous
  Country: US (occurrence: None)
  Receive Date: 20211111
  Receipt Date: 20211111
  Transmission Date: 20220303
  Serious: No
  Sender: FDA-Public Use
  Company Number: US-ROCHE-2860762

PATIENT
  Age: 80 Year
  Sex: Female

DRUGS (1)
  1. GAVRETO [Suspect]
     Active Substance: PRALSETINIB
     Indication: Thyroid cancer
     Route: 048
     Dates: start: 20210121

REACTIONS (3)
  - Cough [Not Recovered/Not Resolved]
  - Speech disorder [Not Recovered/Not Resolved]
  - Increased upper airway secretion [Not Recovered/Not Resolved]

NARRATIVE: CASE EVENT DATE: 20210121
